FAERS Safety Report 15488049 (Version 4)
Quarter: 2019Q1

REPORT INFORMATION
  Report Type: Report from Study
  Country: NO (occurrence: NO)
  Receive Date: 20181011
  Receipt Date: 20190107
  Transmission Date: 20190417
  Serious: Yes (Hospitalization)
  Sender: FDA-Public Use
  Company Number: NO-ROCHE-2195012

PATIENT
  Age: 40 Year
  Sex: Female
  Weight: 70 kg

DRUGS (17)
  1. ONDANSETRON [Concomitant]
     Active Substance: ONDANSETRON
     Route: 065
     Dates: start: 20170329
  2. PARACET (NORWAY) [Concomitant]
     Indication: HEADACHE
  3. AFIPRAN [Concomitant]
     Active Substance: METOCLOPRAMIDE HYDROCHLORIDE
     Route: 065
     Dates: start: 20170329
  4. AKYNZEO [Concomitant]
     Active Substance: NETUPITANT\PALONOSETRON HYDROCHLORIDE
     Route: 065
     Dates: start: 20170518
  5. POLARAMIN [Concomitant]
     Active Substance: DEXCHLORPHENIRAMINE MALEATE
     Indication: RASH MACULO-PAPULAR
     Route: 065
     Dates: start: 20180815, end: 20180829
  6. LOCOID [Concomitant]
     Active Substance: HYDROCORTISONE BUTYRATE
     Indication: RASH MACULO-PAPULAR
     Route: 065
     Dates: start: 20180815, end: 20180829
  7. PARACET (NORWAY) [Concomitant]
     Indication: PAIN
     Route: 065
     Dates: start: 20170330
  8. EURAX [Concomitant]
     Active Substance: CROTAMITON
     Indication: RASH MACULO-PAPULAR
     Route: 065
     Dates: start: 20180801, end: 20180815
  9. KLEXANE [Concomitant]
     Active Substance: ENOXAPARIN
     Indication: PULMONARY EMBOLISM
     Route: 065
     Dates: start: 20180912
  10. CETIRIZIN [Concomitant]
     Active Substance: CETIRIZINE HYDROCHLORIDE
     Indication: RASH MACULO-PAPULAR
     Route: 065
     Dates: start: 20180801, end: 20180815
  11. NAB-PACLITAXEL [Suspect]
     Active Substance: PACLITAXEL
     Indication: TRIPLE NEGATIVE BREAST CANCER
     Dosage: DATE OF MOST RECENT DOSE (183 MG/M2) OF NAB-PACLITAXEL PRIOR TO SAE ONSET: 16 FEB 2018
     Route: 042
     Dates: start: 20170329
  12. KORTISON [Concomitant]
     Active Substance: CORTISONE ACETATE
     Indication: CORTISOL DECREASED
     Route: 065
     Dates: start: 20170816
  13. DUPHALAC (NORWAY) [Concomitant]
     Indication: CONSTIPATION
     Route: 065
     Dates: start: 20170412
  14. DESLORATADIN [Concomitant]
     Active Substance: DESLORATADINE
     Indication: RASH
     Route: 065
     Dates: start: 20170623
  15. LEVAXIN [Concomitant]
     Active Substance: LEVOTHYROXINE SODIUM
     Indication: HYPOTHYROIDISM
     Route: 065
     Dates: start: 20170808
  16. ATEZOLIZUMAB. [Suspect]
     Active Substance: ATEZOLIZUMAB
     Indication: TRIPLE NEGATIVE BREAST CANCER
     Dosage: DATE OF MOST RECENT DOSE OF BLINDED ATEZOLIZUMAB PRIOR TO SAE ONSET: 29 AUG 2018
     Route: 042
     Dates: start: 20170329
  17. PARACET (NORWAY) [Concomitant]
     Indication: PYREXIA

REACTIONS (1)
  - Headache [Not Recovered/Not Resolved]

NARRATIVE: CASE EVENT DATE: 20180103
